FAERS Safety Report 5416905-9 (Version None)
Quarter: 2007Q3

REPORT INFORMATION
  Report Type: 
  Country: None (occurrence: None)
  Receive Date: 20070816
  Receipt Date: 20070806
  Transmission Date: 20080115
  Serious: Yes (Hospitalization, Disabling, Other)
  Sender: FDA-Public Use
  Company Number: JP-PFIZER INC-2007055067

PATIENT
  Sex: Female
  Weight: 48 kg

DRUGS (8)
  1. SALAZOPYRIN [Suspect]
     Route: 048
     Dates: start: 20010607, end: 20070701
  2. VOLTAREN - SLOW RELEASE ^NOVARTIS^ [Suspect]
     Route: 048
     Dates: start: 20010607, end: 20070701
  3. PREDONINE [Suspect]
     Route: 048
     Dates: start: 20010607, end: 20070701
  4. PONTAL [Concomitant]
     Route: 048
     Dates: start: 20010607, end: 20070701
  5. CORTICOSTEROIDS [Concomitant]
  6. ALEVIATIN [Concomitant]
     Route: 048
     Dates: start: 20010607, end: 20070701
  7. CERCINE [Concomitant]
  8. CALCIUM CHLORIDE [Concomitant]
     Route: 042

REACTIONS (2)
  - CONVULSION [None]
  - RENAL DISORDER [None]
